FAERS Safety Report 6375978-X (Version None)
Quarter: 2009Q3

REPORT INFORMATION
  Report Type: 
  Country: None (occurrence: None)
  Receive Date: 20090921
  Receipt Date: 20090908
  Transmission Date: 20100115
  Serious: Yes (Life-Threatening)
  Sender: FDA-Public Use
  Company Number: 2009AL005949

PATIENT
  Age: 55 Year
  Sex: Female

DRUGS (2)
  1. EPIRUBICIN HCL [Suspect]
  2. DOCETAXEL [Concomitant]

REACTIONS (3)
  - APHASIA [None]
  - DISSEMINATED INTRAVASCULAR COAGULATION [None]
  - ODYNOPHAGIA [None]
